FAERS Safety Report 24163219 (Version 1)
Quarter: 2024Q3

REPORT INFORMATION
  Report Type: Spontaneous
  Country: US (occurrence: US)
  Receive Date: 20240801
  Receipt Date: 20240801
  Transmission Date: 20241017
  Serious: Yes (Hospitalization, Other)
  Sender: NOVARTIS
  Company Number: US-002147023-NVSC2024US155769

PATIENT
  Sex: Male

DRUGS (1)
  1. PROMACTA [Suspect]
     Active Substance: ELTROMBOPAG OLAMINE
     Indication: Thrombocytopenia
     Dosage: 75 MG, QD
     Route: 048
     Dates: start: 202403

REACTIONS (4)
  - Neutropenia [Unknown]
  - Pulmonary congestion [Unknown]
  - Pyrexia [Recovered/Resolved]
  - COVID-19 [Unknown]
